FAERS Safety Report 8926870 (Version 1)
Quarter: 2012Q4

REPORT INFORMATION
  Report Type: Report from Study
  Country: BR (occurrence: BR)
  Receive Date: 20121127
  Receipt Date: 20121127
  Transmission Date: 20130627
  Serious: Yes (Hospitalization, Other)
  Sender: FDA-Public Use
  Company Number: BR-ROCHE-1156120

PATIENT
  Sex: Male
  Weight: 91 kg

DRUGS (8)
  1. PEG-INTERFERON ALFA 2A [Suspect]
     Indication: HEPATITIS C
     Route: 042
     Dates: start: 2006, end: 2007
  2. RIBAVIRIN [Suspect]
     Indication: HEPATITIS C
     Route: 048
     Dates: start: 2006, end: 2007
  3. OMEPRAZOL [Concomitant]
     Route: 048
  4. DOMPERIDONE [Concomitant]
     Route: 048
  5. ALDACTONE [Concomitant]
     Indication: ASCITES
     Route: 048
  6. PROPANOLOLI HYDROCHLORIDUM [Concomitant]
     Route: 048
  7. GABANEURAL [Concomitant]
     Indication: DIABETIC NEUROPATHY
     Route: 048
  8. GLIFAGE [Concomitant]
     Route: 048

REACTIONS (2)
  - Drug ineffective [Unknown]
  - Hepatic fibrosis [Not Recovered/Not Resolved]
